FAERS Safety Report 20808335 (Version 1)
Quarter: 2022Q2

REPORT INFORMATION
  Report Type: Spontaneous
  Country: US (occurrence: None)
  Receive Date: 20220509
  Receipt Date: 20220509
  Transmission Date: 20220721
  Serious: Yes (Other)
  Sender: FDA-Public Use
  Company Number: None

PATIENT
  Age: 61 Year
  Sex: Male
  Weight: 108 kg

DRUGS (1)
  1. TOCILIZUMAB [Suspect]
     Active Substance: TOCILIZUMAB
     Dosage: FREQUENCY : ONCE;?
     Route: 042
     Dates: start: 20220128, end: 20220128

REACTIONS (2)
  - Visual impairment [None]
  - Paraesthesia [None]

NARRATIVE: CASE EVENT DATE: 20220128
